FAERS Safety Report 12471145 (Version 1)
Quarter: 2016Q2

REPORT INFORMATION
  Report Type: Spontaneous
  Country: US (occurrence: None)
  Receive Date: 20160615
  Receipt Date: 20160615
  Transmission Date: 20160815
  Serious: No
  Sender: FDA-Public Use
  Company Number: None

PATIENT
  Age: 57 Year
  Sex: Male

DRUGS (9)
  1. IBRANCE [Suspect]
     Active Substance: PALBOCICLIB
     Indication: BREAST CANCER
     Dosage: QD X 21 D
     Route: 048
     Dates: start: 20160420
  2. CLONIDINE. [Concomitant]
     Active Substance: CLONIDINE
  3. VITAMIN D3 [Concomitant]
     Active Substance: CHOLECALCIFEROL
  4. LETROZOLE. [Concomitant]
     Active Substance: LETROZOLE
  5. ZOMELA [Concomitant]
  6. COLACE [Concomitant]
     Active Substance: DOCUSATE SODIUM
  7. ASPIRIN. [Concomitant]
     Active Substance: ASPIRIN
  8. CELEXA [Concomitant]
     Active Substance: CITALOPRAM HYDROBROMIDE
  9. PROCHORPERAZINE (PROCHLORPERAZINE) [Concomitant]
     Active Substance: PROCHLORPERAZINE

REACTIONS (2)
  - Rash pruritic [None]
  - Rash papular [None]

NARRATIVE: CASE EVENT DATE: 20160614
